FAERS Safety Report 9429212 (Version 1)
Quarter: 2013Q3

REPORT INFORMATION
  Report Type: Spontaneous
  Country: NL (occurrence: NL)
  Receive Date: 20130730
  Receipt Date: 20130730
  Transmission Date: 20140515
  Serious: Yes (Hospitalization)
  Sender: FDA-Public Use
  Company Number: NL-UCBSA-092708

PATIENT
  Sex: Female
  Weight: 61 kg

DRUGS (6)
  1. CIMZIA [Suspect]
     Indication: RHEUMATOID ARTHRITIS
     Route: 058
     Dates: start: 20111020
  2. MTX [Concomitant]
     Indication: RHEUMATOID ARTHRITIS
     Route: 048
  3. FOLIC ACID [Concomitant]
     Indication: DRUG TOXICITY PROPHYLAXIS
     Route: 048
  4. CARBASALATE CALCIUM [Concomitant]
  5. OLMESARTAN [Concomitant]
     Indication: HYPERTENSION
     Route: 048
  6. HCT [Concomitant]
     Indication: HYPERTENSION
     Route: 048

REACTIONS (1)
  - Device dislocation [Unknown]
